FAERS Safety Report 6375229-6 (Version None)
Quarter: 2009Q3

REPORT INFORMATION
  Report Type: 
  Country: None (occurrence: None)
  Receive Date: 20090924
  Receipt Date: 20090914
  Transmission Date: 20100115
  Serious: Yes (Hospitalization)
  Sender: FDA-Public Use
  Company Number: FR-PFIZER INC-2009267888

PATIENT
  Age: 79 Year

DRUGS (13)
  1. XANAX [Suspect]
     Indication: ANXIETY
     Dosage: 0.25 MG, 1X/DAY
     Route: 048
     Dates: end: 20090408
  2. ANDROCUR [Suspect]
     Indication: NEOPLASM PROSTATE
     Dosage: 200 MG, 1X/DAY
     Route: 048
     Dates: end: 20090408
  3. FUMAFER [Suspect]
     Indication: IRON DEFICIENCY
     Dosage: UNK
     Route: 048
     Dates: end: 20090408
  4. LAROXYL [Suspect]
     Indication: DEPRESSION
     Dosage: 25 MG, 1X/DAY
     Route: 048
     Dates: end: 20090408
  5. CALCIDOSE [Suspect]
     Indication: CALCIUM DEFICIENCY
     Dosage: 1 G, 1X/DAY
     Route: 048
     Dates: end: 20090408
  6. ROCEPHIN [Suspect]
     Indication: URINARY TRACT INFECTION
     Dosage: 1 DF, 1X/DAY
     Route: 042
     Dates: start: 20090408, end: 20090410
  7. PRIMPERAN [Suspect]
     Indication: NAUSEA
     Dosage: 2 DF, 1X/DAY
     Route: 042
     Dates: start: 20090408, end: 20090413
  8. CIFLOX [Suspect]
     Indication: URINARY TRACT INFECTION
     Dosage: 1 DF, 1X/DAY
     Route: 042
     Dates: start: 20090408, end: 20090413
  9. CALCIPARINE ^DIFREX^ [Suspect]
     Indication: PROPHYLAXIS
     Dosage: 0.4 ML, 2X/DAY
     Route: 042
     Dates: start: 20090408, end: 20090410
  10. NEXIUM [Suspect]
     Indication: PROPHYLAXIS
     Dosage: 40 MG, 1X/DAY
     Route: 048
     Dates: end: 20090426
  11. LASIX [Suspect]
     Dosage: 40 MG, 1X/DAY
     Route: 048
     Dates: end: 20090408
  12. ROVAMYCINE [Suspect]
     Indication: URINARY TRACT INFECTION
     Dosage: UNK
     Route: 048
     Dates: start: 20090301, end: 20090408
  13. PARACETAMOL [Suspect]
     Indication: PAIN
     Dosage: 4 G, 1X/DAY
     Route: 042
     Dates: start: 20090408, end: 20090413

REACTIONS (1)
  - THROMBOCYTOPENIA [None]
